FAERS Safety Report 5329296-9 (Version None)
Quarter: 2007Q2

REPORT INFORMATION
  Report Type: 
  Country: None (occurrence: None)
  Receive Date: 20070518
  Receipt Date: 20070510
  Transmission Date: 20071010
  Serious: Yes (Hospitalization)
  Sender: FDA-Public Use
  Company Number: FR-ABBOTT-07P-056-0367995-00

PATIENT
  Sex: Female

DRUGS (3)
  1. ZECLAR [Suspect]
     Indication: SINUSITIS
     Route: 048
     Dates: start: 20070420
  2. PREDNISOLONE [Suspect]
     Indication: SINUSITIS
     Route: 048
     Dates: start: 20070420
  3. LEVOCETIRIZINE [Suspect]
     Indication: SINUSITIS
     Route: 048
     Dates: start: 20070420

REACTIONS (3)
  - EYELID OEDEMA [None]
  - FACE OEDEMA [None]
  - TONGUE OEDEMA [None]
